FAERS Safety Report 23325718 (Version 1)
Quarter: 2023Q4

REPORT INFORMATION
  Report Type: Spontaneous
  Country: IL (occurrence: IL)
  Receive Date: 20231221
  Receipt Date: 20231221
  Transmission Date: 20240110
  Serious: Yes (Death, Hospitalization, Other)
  Sender: FDA-Public Use
  Company Number: IL-BIOVITRUM-2023-IL-020484

PATIENT
  Age: 54 Year
  Sex: Male

DRUGS (1)
  1. GAMIFANT [Suspect]
     Active Substance: EMAPALUMAB-LZSG
     Indication: Haemophagocytic lymphohistiocytosis
     Dosage: 3 DAYS INTERVAL REACHED THE MAXIMUM DOSE OF 10 MG/KG.
     Dates: start: 20231012, end: 20231119

REACTIONS (5)
  - Neutropenia [Fatal]
  - Septic shock [Fatal]
  - Condition aggravated [Unknown]
  - Loss of therapeutic response [Unknown]
  - Lymphoma [Unknown]
